FAERS Safety Report 23626346 (Version 1)
Quarter: 2024Q1

REPORT INFORMATION
  Report Type: Spontaneous
  Country: IT (occurrence: None)
  Receive Date: 20240313
  Receipt Date: 20240313
  Transmission Date: 20240409
  Serious: Yes (Other)
  Sender: FDA-Public Use
  Company Number: 2024A054566

PATIENT
  Age: 75 Year
  Sex: Female

DRUGS (2)
  1. OLAPARIB [Suspect]
     Active Substance: OLAPARIB
     Indication: Benign ovarian tumour
     Dosage: FROM NOVEMBER 2018 TO APRIL 2019 HE TOOK OLAPARIB 400 MG X 2/DAY (CAPSULES) THEN REPLACED WITH
     Route: 048
     Dates: start: 20181124, end: 201904
  2. OLAPARIB [Suspect]
     Active Substance: OLAPARIB
     Indication: Benign ovarian tumour
     Dosage: FROM NOVEMBER 2018 TO APRIL 2019 HE TOOK OLAPARIB 400 MG X 2/DAY (CAPSULES) THEN REPLACED WITH
     Route: 048
     Dates: end: 202401

REACTIONS (1)
  - High-grade B-cell lymphoma [Not Recovered/Not Resolved]

NARRATIVE: CASE EVENT DATE: 20240201
